FAERS Safety Report 19748031 (Version 3)
Quarter: 2021Q4

REPORT INFORMATION
  Report Type: Report from Study
  Country: GB (occurrence: GB)
  Receive Date: 20210826
  Receipt Date: 20211210
  Transmission Date: 20220303
  Serious: Yes (Other)
  Sender: FDA-Public Use
  Company Number: GB-ROCHE-2862280

PATIENT
  Age: 53 Year
  Sex: Female
  Weight: 63.5 kg

DRUGS (27)
  1. CARBOPLATIN [Suspect]
     Active Substance: CARBOPLATIN
     Indication: Small cell lung cancer extensive stage
     Dosage: 630MG
     Route: 065
     Dates: start: 20210303
  2. ETOPOSIDE [Suspect]
     Active Substance: ETOPOSIDE
     Indication: Small cell lung cancer extensive stage
     Dosage: 180MG
     Route: 065
     Dates: start: 20210303
  3. ATEZOLIZUMAB [Suspect]
     Active Substance: ATEZOLIZUMAB
     Indication: Small cell lung cancer extensive stage
     Dosage: 1200MG
     Route: 042
     Dates: start: 20210303
  4. ETOPOSIDE [Suspect]
     Active Substance: ETOPOSIDE
     Dosage: 350MG
     Route: 048
     Dates: start: 20210401
  5. CETIRIZINE [Concomitant]
     Active Substance: CETIRIZINE HYDROCHLORIDE
     Dosage: 30MG
     Route: 065
     Dates: start: 20210304, end: 20210306
  6. CETIRIZINE [Concomitant]
     Active Substance: CETIRIZINE HYDROCHLORIDE
     Dosage: 30MG
     Route: 065
     Dates: start: 20210211, end: 20210213
  7. CETIRIZINE [Concomitant]
     Active Substance: CETIRIZINE HYDROCHLORIDE
     Dosage: 30MG
     Route: 065
     Dates: start: 20210401, end: 20210403
  8. CHLORPHENIRAMINE MALEATE [Concomitant]
     Active Substance: CHLORPHENIRAMINE MALEATE
     Dosage: 10MG
     Route: 065
     Dates: start: 20210303, end: 20210303
  9. CHLORPHENIRAMINE MALEATE [Concomitant]
     Active Substance: CHLORPHENIRAMINE MALEATE
     Dosage: 10MG
     Route: 065
     Dates: start: 20210331, end: 20210331
  10. CHLORPHENIRAMINE MALEATE [Concomitant]
     Active Substance: CHLORPHENIRAMINE MALEATE
     Dosage: 10MG
     Route: 065
     Dates: start: 20210210, end: 20210210
  11. DEXAMETHASONE [Concomitant]
     Active Substance: DEXAMETHASONE
     Dosage: 20MG
     Route: 065
     Dates: start: 20210331, end: 20210331
  12. DEXAMETHASONE [Concomitant]
     Active Substance: DEXAMETHASONE
     Dosage: 12MG
     Route: 065
     Dates: start: 20210211, end: 20210213
  13. DEXAMETHASONE [Concomitant]
     Active Substance: DEXAMETHASONE
     Dosage: 12MG
     Route: 065
     Dates: start: 20210401, end: 20210403
  14. DEXAMETHASONE [Concomitant]
     Active Substance: DEXAMETHASONE
     Dosage: 20MG
     Route: 065
     Dates: start: 20210303, end: 20210303
  15. DEXAMETHASONE [Concomitant]
     Active Substance: DEXAMETHASONE
     Dosage: 12MG
     Route: 065
     Dates: start: 20210304, end: 20210306
  16. DEXAMETHASONE [Concomitant]
     Active Substance: DEXAMETHASONE
     Dosage: 20MG
     Route: 065
     Dates: start: 20210210, end: 20210210
  17. GRANISETRON [Concomitant]
     Active Substance: GRANISETRON
     Dosage: 3MG
     Route: 065
     Dates: start: 20210303, end: 20210303
  18. GRANISETRON [Concomitant]
     Active Substance: GRANISETRON
     Dosage: 3MG
     Route: 065
     Dates: start: 20210331, end: 20210331
  19. GRANISETRON [Concomitant]
     Active Substance: GRANISETRON
     Dosage: 3MG
     Route: 065
     Dates: start: 20210210, end: 20210210
  20. ACETAMINOPHEN [Concomitant]
     Active Substance: ACETAMINOPHEN
     Indication: Prophylaxis
     Route: 065
  21. RANITIDINE [Concomitant]
     Active Substance: RANITIDINE
     Dosage: 150MG
     Route: 065
     Dates: start: 20210331, end: 20210409
  22. RANITIDINE [Concomitant]
     Active Substance: RANITIDINE
     Dosage: 150MG
     Route: 065
     Dates: start: 20210303, end: 20210312
  23. RANITIDINE [Concomitant]
     Active Substance: RANITIDINE
     Dosage: 150MG
     Route: 065
     Dates: start: 20210210, end: 20210219
  24. ALBUTEROL [Concomitant]
     Active Substance: ALBUTEROL
     Route: 065
  25. FLUTICASONE [Concomitant]
     Active Substance: FLUTICASONE
     Dosage: YES
     Route: 065
  26. LEVOTHYROXINE [Concomitant]
     Active Substance: LEVOTHYROXINE
     Dosage: YES
     Route: 065
     Dates: start: 20210816
  27. ATORVASTATIN [Concomitant]
     Active Substance: ATORVASTATIN
     Dosage: YES
     Route: 065

REACTIONS (9)
  - Lower respiratory tract infection [Recovered/Resolved]
  - Hypothyroidism [Not Recovered/Not Resolved]
  - Arthralgia [Recovered/Resolved]
  - Back pain [Recovered/Resolved]
  - Fatigue [Recovered/Resolved]
  - Nausea [Recovered/Resolved]
  - Skin reaction [Recovered/Resolved]
  - Myalgia [Not Recovered/Not Resolved]
  - Arthralgia [Not Recovered/Not Resolved]

NARRATIVE: CASE EVENT DATE: 20210303
